FAERS Safety Report 6287693-1 (Version None)
Quarter: 2009Q3

REPORT INFORMATION
  Report Type: 
  Country: None (occurrence: None)
  Receive Date: 20090727
  Receipt Date: 20090727
  Transmission Date: 20100115
  Serious: Yes (Life-Threatening)
  Sender: FDA-Public Use
  Company Number: None

PATIENT
  Age: 35 Year
  Sex: Female
  Weight: 79.3795 kg

DRUGS (2)
  1. CYMBALTA [Suspect]
     Indication: FIBROMYALGIA
     Dosage: 60 MG, DAILY, PO
     Route: 048
     Dates: start: 20080401, end: 20090704
  2. LYRICA [Suspect]
     Indication: FIBROMYALGIA
     Dosage: 300 MG, DAILY, PO
     Route: 048
     Dates: start: 20070401, end: 20090704

REACTIONS (15)
  - ANGER [None]
  - COPROLALIA [None]
  - DRUG INEFFECTIVE [None]
  - DYSKINESIA [None]
  - FEELING ABNORMAL [None]
  - FEELING COLD [None]
  - HEART RATE INCREASED [None]
  - HYPOAESTHESIA [None]
  - INSOMNIA [None]
  - MENSTRUATION IRREGULAR [None]
  - MUSCLE TWITCHING [None]
  - NAUSEA [None]
  - NIGHT SWEATS [None]
  - NIGHTMARE [None]
  - PARAESTHESIA [None]
